FAERS Safety Report 5709105-6 (Version None)
Quarter: 2008Q2

REPORT INFORMATION
  Report Type: 
  Country: None (occurrence: None)
  Receive Date: 20080416
  Receipt Date: 20080416
  Transmission Date: 20081010
  Serious: Yes (Hospitalization)
  Sender: FDA-Public Use
  Company Number: None

PATIENT
  Age: 40 Year
  Sex: Female
  Weight: 56.6996 kg

DRUGS (1)
  1. BACTRIM DS [Suspect]
     Indication: SINUSITIS
     Dosage: 1 CAP 2 TIMES A DAY PO
     Route: 048
     Dates: start: 20080328, end: 20080403

REACTIONS (7)
  - CHEST PAIN [None]
  - CHOKING [None]
  - COUGH [None]
  - DYSPNOEA [None]
  - SKIN DISCOLOURATION [None]
  - THERMAL BURN [None]
  - URTICARIA [None]
